FAERS Safety Report 12930079 (Version 2)
Quarter: 2017Q1

REPORT INFORMATION
  Report Type: Spontaneous
  Country: FR (occurrence: FR)
  Receive Date: 20161110
  Receipt Date: 20170210
  Transmission Date: 20170428
  Serious: Yes (Other)
  Sender: FDA-Public Use
  Company Number: FR-SA-2016SA202204

PATIENT
  Age: 47 Year
  Sex: Male

DRUGS (8)
  1. RIFADINE [Suspect]
     Active Substance: RIFAMPIN
     Indication: MENINGITIS TUBERCULOUS
     Route: 048
     Dates: start: 20160419
  2. PENTASA [Concomitant]
     Active Substance: MESALAMINE
  3. GABAPENTIN. [Concomitant]
     Active Substance: GABAPENTIN
  4. ETHAMBUTOL [Concomitant]
     Active Substance: ETHAMBUTOL HYDROCHLORIDE
  5. IZILOX [Suspect]
     Active Substance: MOXIFLOXACIN HYDROCHLORIDE
     Indication: MENINGITIS TUBERCULOUS
     Route: 048
     Dates: start: 20160419, end: 20161118
  6. PIRILENE [Concomitant]
     Active Substance: PYRAZINAMIDE
  7. MECIR [Concomitant]
     Active Substance: TAMSULOSIN HYDROCHLORIDE
  8. RIMIFON [Concomitant]
     Active Substance: ISONIAZID

REACTIONS (1)
  - Neuralgia [Recovering/Resolving]

NARRATIVE: CASE EVENT DATE: 201605
